FAERS Safety Report 25361936 (Version 1)
Quarter: 2025Q2

REPORT INFORMATION
  Report Type: Report from Study
  Country: JP (occurrence: JP)
  Receive Date: 20250527
  Receipt Date: 20250527
  Transmission Date: 20250716
  Serious: Yes (Hospitalization, Other)
  Sender: UCB
  Company Number: JP-UCBJ-CD202506755UCBPHAPROD

PATIENT
  Age: 3 Year
  Sex: Male
  Weight: 14 kg

DRUGS (12)
  1. FINTEPLA [Suspect]
     Active Substance: FENFLURAMINE
     Indication: Severe myoclonic epilepsy of infancy
     Dosage: 0.1 MILLIGRAM/KILOGRAM, 2X/DAY (BID)
     Route: 048
     Dates: start: 20230412
  2. FINTEPLA [Suspect]
     Active Substance: FENFLURAMINE
     Dosage: 0.15 MILLIGRAM/KILOGRAM, 2X/DAY (BID)
     Route: 048
     Dates: start: 20230419
  3. FINTEPLA [Suspect]
     Active Substance: FENFLURAMINE
     Dosage: 0.2 MILLIGRAM/KILOGRAM, 2X/DAY (BID)
     Route: 048
     Dates: start: 20230912
  4. MYSTAN [Suspect]
     Active Substance: CLOBAZAM
     Indication: Severe myoclonic epilepsy of infancy
     Dosage: 6 MILLIGRAM, ONCE DAILY (QD)
     Route: 048
  5. MYSTAN [Suspect]
     Active Substance: CLOBAZAM
     Dosage: 4 MILLIGRAM, ONCE DAILY (QD)
     Route: 048
     Dates: start: 20250402
  6. VALPROATE SODIUM [Concomitant]
     Active Substance: VALPROATE SODIUM
     Indication: Severe myoclonic epilepsy of infancy
     Dosage: 500 MILLIGRAM, ONCE DAILY (QD)
     Route: 048
  7. POTASSIUM BROMIDE [Concomitant]
     Active Substance: POTASSIUM BROMIDE
     Indication: Severe myoclonic epilepsy of infancy
     Dosage: 0.4 MILLIGRAM, ONCE DAILY (QD)
     Route: 048
     Dates: end: 20230711
  8. DIACOMIT [Concomitant]
     Active Substance: STIRIPENTOL
     Indication: Severe myoclonic epilepsy of infancy
     Dosage: 600 MILLIGRAM, ONCE DAILY (QD)
     Route: 048
  9. LEVOCARNITINE [Concomitant]
     Active Substance: LEVOCARNITINE
     Indication: Prophylaxis
     Dosage: 4 MILLILITER, ONCE DAILY (QD)
     Route: 048
  10. SIMPLE SYRUP [Concomitant]
     Active Substance: CITRIC ACID MONOHYDRATE\SUCROSE
     Indication: Product used for unknown indication
     Dosage: 6 MILLILITER, HOURLY
     Route: 048
  11. CARBOCYSTEINE [Concomitant]
     Active Substance: CARBOCYSTEINE
     Indication: Nasopharyngitis
     Dosage: 500 MILLIGRAM, ONCE DAILY (QD)
     Route: 048
  12. CALONAL [Concomitant]
     Active Substance: ACETAMINOPHEN
     Indication: Nasopharyngitis
     Dosage: 150 MILLIGRAM, ONCE DAILY (QD)
     Route: 048

REACTIONS (2)
  - Metapneumovirus pneumonia [Recovering/Resolving]
  - Hypersomnia [Recovering/Resolving]

NARRATIVE: CASE EVENT DATE: 20250326
